FAERS Safety Report 7787729-2 (Version None)
Quarter: 2011Q3

REPORT INFORMATION
  Report Type: 
  Country: None (occurrence: None)
  Receive Date: 20110929
  Receipt Date: 20110921
  Transmission Date: 20111222
  Serious: Yes (Other)
  Sender: FDA-Public Use
  Company Number: US-ASTRAZENECA-2011SE56904

PATIENT
  Sex: Female

DRUGS (3)
  1. NALDA [Concomitant]
  2. SEROQUEL [Suspect]
     Route: 048
  3. NEXIUM [Suspect]
     Route: 048

REACTIONS (2)
  - GASTRIC CANCER [None]
  - CROHN'S DISEASE [None]
